FAERS Safety Report 14667194 (Version 1)
Quarter: 2018Q1

REPORT INFORMATION
  Report Type: Spontaneous
  Country: US (occurrence: US)
  Receive Date: 20180322
  Receipt Date: 20180322
  Transmission Date: 20180509
  Serious: Yes (Death, Hospitalization, Other)
  Sender: FDA-Public Use
  Company Number: US-VISTAPHARM, INC.-VER201803-000469

PATIENT
  Age: 44 Year
  Sex: Male

DRUGS (1)
  1. HYDROCODONE AND ACETAMINOPHEN [Suspect]
     Active Substance: ACETAMINOPHEN\HYDROCODONE
     Indication: PRODUCT USED FOR UNKNOWN INDICATION

REACTIONS (6)
  - Acute hepatic failure [Fatal]
  - Acute kidney injury [Unknown]
  - Metabolic acidosis [Unknown]
  - Cardiac arrest [Fatal]
  - Toxicity to various agents [Unknown]
  - Hyperkalaemia [Unknown]
